FAERS Safety Report 4543545-6 (Version None)
Quarter: 2004Q4

REPORT INFORMATION
  Report Type: 
  Country: None (occurrence: None)
  Receive Date: 20041229
  Receipt Date: 20041229
  Transmission Date: 20050328
  Serious: Yes (Hospitalization)
  Sender: FDA-Public Use
  Company Number: None

PATIENT
  Age: 16 Year
  Sex: Male
  Weight: 69.9 kg

DRUGS (3)
  1. IFOSFAMIDE [Suspect]
     Indication: EWING'S SARCOMA METASTATIC
     Dosage: 1800MG/M2   1HR, DAYS 1-5    INTRAVENOU
     Route: 042
     Dates: start: 20040819, end: 20040825
  2. ETOPOSIDE [Suspect]
     Dosage: 100 MG/M2   1HR, DAYS 1-5    INTRAVENOU
     Route: 042
  3. VANCOMYCIN [Concomitant]

REACTIONS (7)
  - BLOOD CULTURE [None]
  - CATHETER SITE DISCHARGE [None]
  - NEUTROPENIA [None]
  - PURULENCE [None]
  - PYREXIA [None]
  - SEPTIC SHOCK [None]
  - STAPHYLOCOCCAL INFECTION [None]
